FAERS Safety Report 25113893 (Version 1)
Quarter: 2025Q1

REPORT INFORMATION
  Report Type: Spontaneous
  Country: US (occurrence: None)
  Receive Date: 20250323
  Receipt Date: 20250323
  Transmission Date: 20250409
  Serious: Yes (Life-Threatening, Other)
  Sender: FDA-CTU
  Company Number: None

PATIENT
  Age: 44 Year
  Sex: Female
  Weight: 63 kg

DRUGS (1)
  1. SEMAGLUTIDE [Suspect]
     Active Substance: SEMAGLUTIDE
     Indication: Weight decreased
     Dates: start: 20240405, end: 20241114

REACTIONS (5)
  - Halo vision [None]
  - Circulatory collapse [None]
  - Fall [None]
  - Seizure [None]
  - Cardiac arrest [None]

NARRATIVE: CASE EVENT DATE: 20241116
